FAERS Safety Report 7737537-3 (Version None)
Quarter: 2011Q3

REPORT INFORMATION
  Report Type: 
  Country: None (occurrence: None)
  Receive Date: 20110908
  Receipt Date: 20110902
  Transmission Date: 20111222
  Serious: Yes (Other)
  Sender: FDA-Public Use
  Company Number: US-AMGEN-USASP2011045210

PATIENT
  Age: 37 Year
  Sex: Female

DRUGS (9)
  1. CELEXA [Concomitant]
  2. CYTOXAN [Concomitant]
     Indication: BREAST CANCER
  3. NEUPOGEN [Suspect]
     Indication: BREAST CANCER
     Dates: start: 20110604
  4. WELLBUTRIN [Concomitant]
  5. DEXAMETHASONE [Concomitant]
     Dosage: UNK
  6. TAXOL [Concomitant]
     Indication: BREAST CANCER
  7. ADRIAMYCIN PFS [Concomitant]
     Indication: BREAST CANCER
  8. GEMZAR [Concomitant]
     Indication: BREAST CANCER
  9. EMEND                              /01627301/ [Concomitant]

REACTIONS (2)
  - WHITE BLOOD CELL COUNT INCREASED [None]
  - METASTASES TO BONE [None]
